FAERS Safety Report 5330416-0 (Version None)
Quarter: 2007Q2

REPORT INFORMATION
  Report Type: 
  Country: None (occurrence: None)
  Receive Date: 20070515
  Receipt Date: 20070430
  Transmission Date: 20071010
  Serious: Yes (Other)
  Sender: FDA-Public Use
  Company Number: CIP07000848

PATIENT
  Age: 28 Year
  Sex: Female

DRUGS (1)
  1. ASASOL(MESALAMINE) EC TABLET, 400MG [Suspect]
     Indication: COLITIS ULCERATIVE
     Dosage: 400 MG THREE TIMES A DAY, ORAL
     Route: 048
     Dates: start: 19990101, end: 20040101

REACTIONS (9)
  - BRONCHIAL SECRETION RETENTION [None]
  - BRONCHIAL WALL THICKENING [None]
  - BRONCHIECTASIS [None]
  - BRONCHITIS BACTERIAL [None]
  - COLITIS ULCERATIVE [None]
  - CONDITION AGGRAVATED [None]
  - EOSINOPHILIA [None]
  - NASAL CONGESTION [None]
  - WEIGHT DECREASED [None]
